FAERS Safety Report 4731442-2 (Version None)
Quarter: 2005Q3

REPORT INFORMATION
  Report Type: 
  Country: None (occurrence: None)
  Receive Date: 20050719
  Receipt Date: 20040603
  Transmission Date: 20060218
  Serious: Yes (Other)
  Sender: FDA-Public Use
  Company Number: 199220

PATIENT
  Age: 40 Year
  Sex: Female

DRUGS (4)
  1. AVONEX [Suspect]
     Indication: MULTIPLE SCLEROSIS
     Dosage: QW;IM
     Route: 030
     Dates: end: 20040101
  2. MOTRIN [Concomitant]
  3. XANAX [Concomitant]
  4. PRENATAL VITAMINS [Concomitant]

REACTIONS (1)
  - ABORTION SPONTANEOUS [None]
